FAERS Safety Report 4833940-X (Version None)
Quarter: 2005Q4

REPORT INFORMATION
  Report Type: 
  Country: None (occurrence: None)
  Receive Date: 20051118
  Receipt Date: 20051118
  Transmission Date: 20060501
  Serious: Yes (Life-Threatening, Hospitalization)
  Sender: FDA-Public Use
  Company Number: None

PATIENT
  Age: 14 Year
  Sex: Male
  Weight: 45.3597 kg

DRUGS (8)
  1. RISPERDAL [Suspect]
     Indication: DEPRESSED MOOD
     Dates: start: 20050301, end: 20050705
  2. RISPERDAL [Suspect]
     Indication: IMPULSE-CONTROL DISORDER
     Dates: start: 20050301, end: 20050705
  3. SEROQUEL [Suspect]
     Indication: ABNORMAL BEHAVIOUR
     Dosage: (?UNSURE) 300MG DAILY
     Dates: start: 20050801
  4. BENADRYL [Concomitant]
  5. DEPAKOTE [Concomitant]
  6. VIRACEPT [Concomitant]
  7. EPIVIR [Concomitant]
  8. ZERIT [Concomitant]

REACTIONS (14)
  - ABNORMAL BEHAVIOUR [None]
  - AGGRESSION [None]
  - BIPOLAR DISORDER [None]
  - DIFFICULTY IN WALKING [None]
  - DROOLING [None]
  - INCREASED APPETITE [None]
  - INTELLIGENCE TEST ABNORMAL [None]
  - MENTAL RETARDATION SEVERITY UNSPECIFIED [None]
  - PARALYSIS [None]
  - STARING [None]
  - SWELLING FACE [None]
  - TONGUE DISORDER [None]
  - TREMOR [None]
  - WEIGHT INCREASED [None]
